FAERS Safety Report 26145147 (Version 1)
Quarter: 2025Q4

REPORT INFORMATION
  Report Type: Spontaneous
  Country: US (occurrence: US)
  Receive Date: 20251211
  Receipt Date: 20251211
  Transmission Date: 20260118
  Serious: Yes (Hospitalization)
  Sender: SANDOZ
  Company Number: US-002147023-NVSC2025US189051

PATIENT
  Age: 55 Year
  Sex: Female
  Weight: 80.6 kg

DRUGS (6)
  1. FULVESTRANT [Suspect]
     Active Substance: FULVESTRANT
     Indication: PIK3CA-activated mutation
     Dosage: 500 MG D1 AND D15 OF CYCLE 1 THEN D1 OF  EACH 28 DAY CYCLE
     Route: 030
     Dates: start: 20251124, end: 20251124
  2. FULVESTRANT [Suspect]
     Active Substance: FULVESTRANT
     Indication: Endometrial cancer
  3. ACETAMINOPHEN [Concomitant]
     Active Substance: ACETAMINOPHEN
     Indication: Hyponatraemia
     Dosage: 1000 MG, ONCE
     Route: 042
     Dates: start: 20251204, end: 20251204
  4. DOCUSATE SODIUM\SENNOSIDE A\SENNOSIDE B [Concomitant]
     Active Substance: DOCUSATE SODIUM\SENNOSIDE A\SENNOSIDE B
     Indication: Prophylaxis
     Dosage: 58.6 MG, BID
     Route: 048
     Dates: start: 20251204
  5. INSULIN NOS [Concomitant]
     Active Substance: INSULIN NOS
     Indication: Hyperglycaemia
     Dosage: 3 UNITS, ONCE
     Route: 058
     Dates: start: 20251205
  6. POLYETHYLENE GLYCOL [Concomitant]
     Active Substance: POLYETHYLENE GLYCOL
     Indication: Prophylaxis
     Dosage: 17 G, QD
     Route: 048
     Dates: start: 20251205

REACTIONS (2)
  - Vomiting [Not Recovered/Not Resolved]
  - Nausea [Not Recovered/Not Resolved]

NARRATIVE: CASE EVENT DATE: 20251204
